FAERS Safety Report 8009851-8 (Version None)
Quarter: 2011Q4

REPORT INFORMATION
  Report Type: 
  Country: None (occurrence: None)
  Receive Date: 20111221
  Receipt Date: 20111205
  Transmission Date: 20120403
  Serious: Yes (Death, Hospitalization)
  Sender: FDA-Public Use
  Company Number: 2011AP002855

PATIENT
  Age: 49 Year
  Sex: Male

DRUGS (8)
  1. BUPROPION HYDROCHLORIDE [Suspect]
     Indication: PRODUCT USED FOR UNKNOWN INDICATION
  2. METOPROLOL SUCCINATE [Suspect]
     Indication: PRODUCT USED FOR UNKNOWN INDICATION
  3. NOREPINEPHRINE BITARTRATE [Suspect]
     Indication: CARDIOGENIC SHOCK
  4. LISINOPRIL [Suspect]
     Indication: PRODUCT USED FOR UNKNOWN INDICATION
  5. DIPHENHYDRAMINE HCL [Suspect]
     Indication: PRODUCT USED FOR UNKNOWN INDICATION
  6. INSULIN [Suspect]
     Indication: CARDIOGENIC SHOCK
     Dosage: IVDRP
     Route: 041
  7. QUETIAPINE [Suspect]
     Indication: PRODUCT USED FOR UNKNOWN INDICATION
  8. INSULIN [Suspect]
     Indication: CARDIOGENIC SHOCK
     Dosage: 80 IU; IVBOL
     Route: 040

REACTIONS (4)
  - MULTIPLE DRUG OVERDOSE [None]
  - HYPOKALAEMIA [None]
  - CARDIAC ARREST [None]
  - CARDIOGENIC SHOCK [None]
